FAERS Safety Report 17799271 (Version 2)
Quarter: 2020Q4

REPORT INFORMATION
  Report Type: Report from Study
  Country: US (occurrence: US)
  Receive Date: 20200518
  Receipt Date: 20201118
  Transmission Date: 20210113
  Serious: Yes (Life-Threatening)
  Sender: FDA-Public Use
  Company Number: US-PFIZER INC-2020193131

PATIENT
  Sex: Female

DRUGS (2)
  1. CISPLATIN. [Suspect]
     Active Substance: CISPLATIN
     Indication: CERVIX CARCINOMA
     Dosage: 40 MG/M2, CYCLIC (ONCE WEEKLY, 5 CYCLES, CISPLATIN FOLLOWED BY GEMCITABINE)
     Route: 042
  2. GEMCITABINE HYDROCHLORIDE. [Suspect]
     Active Substance: GEMCITABINE HYDROCHLORIDE
     Indication: CERVIX CARCINOMA
     Dosage: 50 MG/M2, CYCLIC (ONCE WEEKLY, 5 CYCLES, CISPLATIN FOLLOWED BY GEMCITABINE)
     Route: 042

REACTIONS (2)
  - Drug hypersensitivity [Unknown]
  - Systemic inflammatory response syndrome [Unknown]
